FAERS Safety Report 9227122 (Version 1)
Quarter: 2013Q2

REPORT INFORMATION
  Report Type: Spontaneous
  Country: AU (occurrence: AU)
  Receive Date: 20130412
  Receipt Date: 20130412
  Transmission Date: 20140414
  Serious: Yes (Other)
  Sender: FDA-Public Use
  Company Number: AU-JNJFOC-20130317560

PATIENT
  Age: 30 Year
  Sex: Female

DRUGS (5)
  1. REMICADE [Suspect]
     Indication: PYODERMA GANGRENOSUM
     Dosage: FIRST DOSE
     Route: 042
     Dates: start: 20130318, end: 20130318
  2. AZATHIOPRINE [Concomitant]
     Route: 065
     Dates: start: 2013
  3. PREDNISONE [Concomitant]
     Route: 065
     Dates: start: 2013
  4. HYDROCORTISONE [Concomitant]
     Indication: PREMEDICATION
     Route: 042
     Dates: start: 20130318
  5. PHENERGAN [Concomitant]
     Indication: PREMEDICATION
     Route: 048
     Dates: start: 20130318

REACTIONS (5)
  - Tachycardia [Recovered/Resolved]
  - Urticaria [Recovered/Resolved]
  - Hypotension [Recovered/Resolved]
  - Pyrexia [Unknown]
  - Off label use [Unknown]
